FAERS Safety Report 4544570-1 (Version None)
Quarter: 2005Q1

REPORT INFORMATION
  Report Type: 
  Country: None (occurrence: None)
  Receive Date: 20050104
  Receipt Date: 20041223
  Transmission Date: 20050727
  Serious: Yes (Death)
  Sender: FDA-Public Use
  Company Number: 2004120021

PATIENT
  Age: 84 Year
  Sex: Male

DRUGS (7)
  1. BENGAY ULTRA SETRENGTH PATCH (MENTHOL) [Suspect]
     Indication: BACK PAIN
     Dosage: INTERMITENTLY, TOPICAL
     Route: 061
  2. ATORVASTATIN (ATORVASTATIN) [Concomitant]
  3. CLOPIDOGREL SULFATE (CLOPIDOGREL  SULFATE (CLOPIDOGREL SULFATE) [Concomitant]
  4. METOPROLOL TARTRATE [Concomitant]
  5. AMLODIPINE BESYLATE [Concomitant]
  6. LANSOPRAZOLE [Concomitant]
  7. FERROUS SULFATE TAB [Concomitant]

REACTIONS (1)
  - CEREBROVASCULAR ACCIDENT [None]
